FAERS Safety Report 6641608-2 (Version None)
Quarter: 2010Q1

REPORT INFORMATION
  Report Type: 
  Country: None (occurrence: None)
  Receive Date: 20100317
  Receipt Date: 20100317
  Transmission Date: 20100710
  Serious: Yes (Life-Threatening, Hospitalization)
  Sender: FDA-Public Use
  Company Number: None

PATIENT
  Age: 71 Year
  Sex: Female
  Weight: 59 kg

DRUGS (7)
  1. HEPARIN [Suspect]
     Indication: PROPHYLAXIS
     Dosage: 30,000 UNITS ONCE IV
     Route: 042
     Dates: start: 20100128
  2. ASPIRIN [Concomitant]
  3. CEFAZOLIN [Concomitant]
  4. HYDROMORPHONE HCL [Concomitant]
  5. METRONIDAZOLE [Concomitant]
  6. POTASSIUM CHLORIDE [Concomitant]
  7. RANITIDINE [Concomitant]

REACTIONS (3)
  - ACTIVATED PARTIAL THROMBOPLASTIN TIME PROLONGED [None]
  - HAEMOGLOBIN DECREASED [None]
  - INCORRECT DOSE ADMINISTERED [None]
